FAERS Safety Report 5737908-0 (Version None)
Quarter: 2008Q2

REPORT INFORMATION
  Report Type: 
  Country: None (occurrence: None)
  Receive Date: 20080509
  Receipt Date: 20071207
  Transmission Date: 20081010
  Serious: Yes (Life-Threatening)
  Sender: FDA-Public Use
  Company Number: 80464

PATIENT
  Age: 61 Year
  Sex: Male
  Weight: 70 kg

DRUGS (3)
  1. IBUPROFEN [Suspect]
     Indication: ARTHRITIS
     Dosage: 400 MG/ 3/1 DAYS/ORAL
     Route: 048
     Dates: start: 20061025, end: 20071025
  2. DETRUSITOL XL [Concomitant]
  3. FLOMAX [Concomitant]

REACTIONS (1)
  - GASTRIC ULCER [None]
